FAERS Safety Report 7265193-X (Version None)
Quarter: 2011Q1

REPORT INFORMATION
  Report Type: 
  Country: None (occurrence: None)
  Receive Date: 20110131
  Receipt Date: 20110120
  Transmission Date: 20110831
  Serious: Yes (Hospitalization)
  Sender: FDA-Public Use
  Company Number: JP-ASTRAZENECA-2010SE50859

PATIENT
  Age: 0 Month
  Sex: Female

DRUGS (9)
  1. FENTANYL [Concomitant]
     Indication: EPIDURAL ANAESTHESIA
     Dosage: 20 MICRO-G/HR X 1, 26 MICROG/HR X 1
     Route: 064
     Dates: start: 20101018, end: 20101018
  2. PROSTARMON F [Concomitant]
     Indication: LABOUR INDUCTION
     Dosage: 180 - 1320 MICROG/HR
     Route: 064
     Dates: start: 20101018, end: 20101018
  3. XYLOCAINE [Suspect]
     Indication: EPIDURAL TEST DOSE
     Route: 064
     Dates: start: 20101018, end: 20101018
  4. XYLOCAINE [Suspect]
     Indication: EPIDURAL ANAESTHESIA
     Route: 064
     Dates: start: 20101018, end: 20101018
  5. MARCAINE [Suspect]
     Indication: EPIDURAL ANAESTHESIA
     Route: 064
     Dates: start: 20101018, end: 20101018
  6. XYLOCAINE [Suspect]
     Route: 064
     Dates: start: 20101018, end: 20101018
  7. MARCAINE [Suspect]
     Route: 064
     Dates: start: 20101018, end: 20101018
  8. XYLOCAINE [Suspect]
     Route: 064
     Dates: start: 20101018, end: 20101018
  9. ROPIVACAINE HYDROCHLORIDE [Concomitant]
     Indication: EPIDURAL ANAESTHESIA
     Dosage: 47.4 MG, 10 ML/HR AT FIRST AND INCREASED TO 13 ML/HR
     Route: 064
     Dates: start: 20101018, end: 20101018

REACTIONS (2)
  - NEONATAL ASPHYXIA [None]
  - NEONATAL INFECTION [None]
